FAERS Safety Report 18585795 (Version 1)
Quarter: 2020Q4

REPORT INFORMATION
  Report Type: Spontaneous
  Country: US (occurrence: US)
  Receive Date: 20201206
  Receipt Date: 20201206
  Transmission Date: 20210114
  Serious: Yes (Hospitalization)
  Sender: FDA-Public Use
  Company Number: None

PATIENT
  Age: 52 Year
  Sex: Female
  Weight: 67.5 kg

DRUGS (3)
  1. QSYMIA [Suspect]
     Active Substance: PHENTERMINE HYDROCHLORIDE\TOPIRAMATE
     Indication: OBESITY
     Dosage: ?          QUANTITY:30 CAPSULE(S);?
     Route: 048
     Dates: start: 20200501, end: 20201120
  2. VITAMIN D [Concomitant]
     Active Substance: VITAMIN D NOS
  3. FISH OIL [Concomitant]
     Active Substance: FISH OIL

REACTIONS (1)
  - Nephrolithiasis [None]

NARRATIVE: CASE EVENT DATE: 20201125
